FAERS Safety Report 9452298 (Version 1)
Quarter: 2013Q3

REPORT INFORMATION
  Report Type: Spontaneous
  Country: US (occurrence: None)
  Receive Date: 20130808
  Receipt Date: 20130808
  Transmission Date: 20140515
  Serious: No
  Sender: FDA-Public Use
  Company Number: None

PATIENT
  Age: 53 Year
  Sex: Female
  Weight: 90.72 kg

DRUGS (4)
  1. MOTRIN IB [Suspect]
     Indication: HEADACHE
     Dosage: 2 PILLS EVERY 6 HOURS BY MOUTH
     Route: 048
     Dates: start: 201208, end: 20130718
  2. MOTRIN IB [Suspect]
     Indication: PAIN
     Dosage: 2 PILLS EVERY 6 HOURS BY MOUTH
     Route: 048
     Dates: start: 201208, end: 20130718
  3. MOTRIN IB [Suspect]
     Indication: NEURALGIA
     Dosage: 2 PILLS EVERY 6 HOURS BY MOUTH
     Route: 048
     Dates: start: 201208, end: 20130718
  4. VITAMINS [Concomitant]

REACTIONS (1)
  - Product contamination physical [None]
